FAERS Safety Report 5422466-0 (Version None)
Quarter: 2007Q3

REPORT INFORMATION
  Report Type: 
  Country: None (occurrence: None)
  Receive Date: 20070822
  Receipt Date: 20070816
  Transmission Date: 20080115
  Serious: Yes (Hospitalization, Other)
  Sender: FDA-Public Use
  Company Number: PHHO2006US14742

PATIENT
  Age: 80 Year
  Sex: Female
  Weight: 61.2 kg

DRUGS (10)
  1. EXJADE [Suspect]
     Indication: BLOOD IRON INCREASED
     Dosage: 1250 MG, QD
     Route: 048
     Dates: start: 20060718, end: 20070624
  2. SYNTHROID [Concomitant]
     Indication: HYPOTHYROIDISM
  3. LASIX [Concomitant]
     Indication: OEDEMA
  4. LOPRESSOR [Concomitant]
     Indication: ARTERIOSCLEROSIS CORONARY ARTERY
  5. FOSAMAX [Concomitant]
  6. VICODIN [Concomitant]
  7. CALCIUM [Concomitant]
  8. RED BLOOD CELLS [Concomitant]
  9. LEVOTHYROXINE SODIUM [Concomitant]
     Indication: HYPOTHYROIDISM
  10. TYLENOL [Concomitant]

REACTIONS (18)
  - ABDOMINAL PAIN UPPER [None]
  - CARDIAC FAILURE CONGESTIVE [None]
  - CHOLELITHIASIS [None]
  - CHROMATURIA [None]
  - DYSPNOEA [None]
  - ESCHERICHIA SEPSIS [None]
  - FAECES PALE [None]
  - HAEMOCHROMATOSIS [None]
  - HEPATITIS [None]
  - JAUNDICE CHOLESTATIC [None]
  - LIVER FUNCTION TEST ABNORMAL [None]
  - NAUSEA [None]
  - PANCREATIC ATROPHY [None]
  - PANCREATIC CYST [None]
  - PYREXIA [None]
  - SINUS TACHYCARDIA [None]
  - URINARY TRACT INFECTION [None]
  - VOMITING [None]
